FAERS Safety Report 17560857 (Version 1)
Quarter: 2020Q1

REPORT INFORMATION
  Report Type: Report from Study
  Country: MX (occurrence: MX)
  Receive Date: 20200319
  Receipt Date: 20200319
  Transmission Date: 20200409
  Serious: Yes (Other)
  Sender: FDA-Public Use
  Company Number: NVSC2020MX077517

PATIENT
  Sex: Male
  Weight: 78 kg

DRUGS (2)
  1. ENTRESTO [Suspect]
     Active Substance: SACUBITRIL\VALSARTAN
     Indication: PRODUCT USE IN UNAPPROVED INDICATION
     Dosage: 0.5 DF, BID
     Route: 048
     Dates: start: 2018
  2. ENTRESTO [Suspect]
     Active Substance: SACUBITRIL\VALSARTAN
     Dosage: 1 DF, QD (APPROXIMATELY 6 MONTHS AGO)
     Route: 048
     Dates: start: 2018

REACTIONS (4)
  - Off label use [Unknown]
  - Product prescribing error [Unknown]
  - Deafness [Unknown]
  - Gastrooesophageal reflux disease [Unknown]

NARRATIVE: CASE EVENT DATE: 2018
